FAERS Safety Report 13656596 (Version 6)
Quarter: 2017Q4

REPORT INFORMATION
  Report Type: Report from Study
  Country: CA (occurrence: CA)
  Receive Date: 20170615
  Receipt Date: 20171030
  Transmission Date: 20180320
  Serious: Yes (Death, Life-Threatening, Hospitalization, Other)
  Sender: FDA-Public Use
  Company Number: PHHY2017CA040049

PATIENT
  Age: 67 Year
  Sex: Female
  Weight: 86.5 kg

DRUGS (17)
  1. BISOPROLOL [Concomitant]
     Active Substance: BISOPROLOL
     Indication: CARDIAC FAILURE
     Dosage: 10 MG, QD
     Route: 048
     Dates: start: 20170131, end: 20170705
  2. DOBUTAMINE [Concomitant]
     Active Substance: DOBUTAMINE\DOBUTAMINE HYDROCHLORIDE
     Indication: CARDIAC FAILURE
     Dosage: 295200 UG, QD
     Route: 042
     Dates: start: 20170706, end: 20170707
  3. AMIODARONE [Concomitant]
     Active Substance: AMIODARONE
     Indication: CARDIAC FAILURE
     Dosage: 1750 MG, QD
     Route: 042
     Dates: start: 20170606
  4. FUROSEMIDE. [Concomitant]
     Active Substance: FUROSEMIDE
     Indication: CARDIAC FAILURE
     Dosage: 80 MG, QD
     Route: 048
     Dates: start: 20170215
  5. ENTRESTO [Suspect]
     Active Substance: SACUBITRIL\VALSARTAN
     Indication: CARDIAC FAILURE CONGESTIVE
     Dosage: 1 DF (100MG) (49MG OF SACUBITRIL /51MG OF VALSARTAN) , UNK
     Route: 048
     Dates: start: 20161126, end: 20170403
  6. METHYLPREDNISOLONE. [Concomitant]
     Active Substance: METHYLPREDNISOLONE
     Indication: CHRONIC OBSTRUCTIVE PULMONARY DISEASE
     Dosage: 40 MG, UNK
     Route: 042
     Dates: start: 20170706
  7. METHYLPREDNISOLONE. [Concomitant]
     Active Substance: METHYLPREDNISOLONE
     Dosage: 40 MG, UNK
     Route: 042
     Dates: start: 20170707
  8. LIPITOR [Concomitant]
     Active Substance: ATORVASTATIN CALCIUM
     Dosage: 10 MG, QD
     Route: 065
  9. ENTRESTO [Suspect]
     Active Substance: SACUBITRIL\VALSARTAN
     Dosage: 1 DF (200MG) (97 MG OF SACUBITRIL /103 MG OF VALSARTAN), BID
     Route: 048
     Dates: start: 20170403, end: 20170525
  10. ATORVASTATIN [Concomitant]
     Active Substance: ATORVASTATIN
     Indication: CARDIAC FAILURE
     Dosage: 40 MG, QD
     Route: 048
     Dates: start: 20090424, end: 20170705
  11. LIPITOR [Concomitant]
     Active Substance: ATORVASTATIN CALCIUM
     Indication: PRODUCT USED FOR UNKNOWN INDICATION
     Dosage: UNK
     Route: 065
  12. ENTRESTO [Suspect]
     Active Substance: SACUBITRIL\VALSARTAN
     Dosage: 2 DF (100 MG) (49MG OF SACUBITRIL /51MG OF VALSARTAN) , UNK
     Route: 048
     Dates: start: 20170525, end: 20170616
  13. LEVOPHED [Concomitant]
     Active Substance: NOREPINEPHRINE BITARTRATE
     Indication: CARDIAC FAILURE
     Dosage: 50400 UG, QD
     Route: 042
     Dates: start: 20170706
  14. BISOPROLOL [Concomitant]
     Active Substance: BISOPROLOL
     Dosage: 5 MG, QD
     Route: 048
     Dates: start: 20170705, end: 20170706
  15. NOREPINEPHRINE. [Concomitant]
     Active Substance: NOREPINEPHRINE
     Dosage: 1 MG/ML, UNK
     Route: 042
     Dates: start: 20170708
  16. NOREPINEPHRINE. [Concomitant]
     Active Substance: NOREPINEPHRINE
     Indication: HYPOTENSION
     Dosage: 1 MG/ML, UNK
     Route: 042
     Dates: start: 20170706
  17. FUROSEMIDE. [Concomitant]
     Active Substance: FUROSEMIDE
     Dosage: 20 MG, QD
     Route: 048
     Dates: start: 20170616, end: 20170706

REACTIONS (13)
  - Atrial fibrillation [Fatal]
  - Secondary hypothyroidism [Fatal]
  - Myxoedema coma [Fatal]
  - Mental status changes [Fatal]
  - Cardiac failure [Fatal]
  - Liver function test increased [Not Recovered/Not Resolved]
  - Nephropathy [Not Recovered/Not Resolved]
  - Ischaemic cardiomyopathy [Fatal]
  - Confusional state [Fatal]
  - Blood pressure decreased [Fatal]
  - Ejection fraction decreased [Fatal]
  - Atrial fibrillation [Fatal]
  - Acute kidney injury [Recovered/Resolved]

NARRATIVE: CASE EVENT DATE: 20170123
